FAERS Safety Report 6131414-X (Version None)
Quarter: 2009Q1

REPORT INFORMATION
  Report Type: 
  Country: None (occurrence: None)
  Receive Date: 20090325
  Receipt Date: 20080627
  Transmission Date: 20090719
  Serious: No
  Sender: FDA-Public Use
  Company Number: US-BRISTOL-MYERS SQUIBB COMPANY-14213144

PATIENT
  Age: 79 Year
  Sex: Male

DRUGS (15)
  1. ERBITUX [Suspect]
     Indication: COLON CANCER
     Dosage: INITIAL TREATMENT STARTED ON OCT-2007.WEEKLY FROM 5DEC07.22 DOSES.DATES:5DEC07-8MAY08
     Route: 042
     Dates: start: 20080501, end: 20080501
  2. VALTREX [Concomitant]
     Indication: RETINOPATHY
  3. ATENOLOL [Concomitant]
  4. FLOMAX [Concomitant]
  5. NEXIUM [Concomitant]
     Dosage: 4 DOSAGE FORM = 4C
  6. PRAVACHOL [Concomitant]
     Dosage: 1 DOSAGE FORM =20, UNITS NOT SPECIFIED.
  7. TIMOLOL MALEATE [Concomitant]
  8. CAMPTOSAR [Concomitant]
     Indication: PREMEDICATION
     Dosage: 2 WEEKS ON, 1 WEEK OFF
     Dates: start: 20070620
  9. ZOFRAN [Concomitant]
     Indication: PREMEDICATION
     Route: 042
  10. DECADRON [Concomitant]
     Indication: PREMEDICATION
     Route: 042
  11. CYCLOBENZAPRINE [Concomitant]
  12. MINOCYCLINE HCL [Concomitant]
  13. METROGEL [Concomitant]
  14. NIVEA [Concomitant]
  15. AMBIEN [Concomitant]
     Dosage: 1 DOSAGE FORM = 500, UNITS NOT SPECIFIED

REACTIONS (3)
  - RASH [None]
  - SKIN BACTERIAL INFECTION [None]
  - SKIN HYPERTROPHY [None]
